FAERS Safety Report 26114274 (Version 1)
Quarter: 2025Q4

REPORT INFORMATION
  Report Type: Spontaneous
  Country: US (occurrence: None)
  Receive Date: 20251202
  Receipt Date: 20251202
  Transmission Date: 20260118
  Serious: No
  Sender: ALKERMES
  Company Number: US-ALKERMES INC.-ALK-2025-003100

PATIENT
  Sex: Male
  Weight: 115.19 kg

DRUGS (1)
  1. VIVITROL [Suspect]
     Active Substance: NALTREXONE
     Indication: Alcohol abuse
     Dosage: 380 MILLIGRAM, Q28D

REACTIONS (7)
  - Erythema [Unknown]
  - Flushing [Unknown]
  - Cold flash [Unknown]
  - Alcoholism [Unknown]
  - Anxiety [Unknown]
  - Hot flush [Unknown]
  - Hyperhidrosis [Unknown]
